FAERS Safety Report 5328325-6 (Version None)
Quarter: 2007Q2

REPORT INFORMATION
  Report Type: 
  Country: None (occurrence: None)
  Receive Date: 20070518
  Receipt Date: 20070510
  Transmission Date: 20071010
  Serious: Yes (Other)
  Sender: FDA-Public Use
  Company Number: PHHO2007CZ07985

PATIENT
  Age: 52 Year
  Sex: Female

DRUGS (2)
  1. RIVOTRIL [Concomitant]
  2. CLOZAPINE [Suspect]
     Dosage: 400 MG, QD
     Route: 048

REACTIONS (3)
  - GRANULOCYTE COUNT DECREASED [None]
  - LYMPHOCYTE COUNT DECREASED [None]
  - WHITE BLOOD CELL COUNT DECREASED [None]
